FAERS Safety Report 4642708-9 (Version None)
Quarter: 2005Q2

REPORT INFORMATION
  Report Type: 
  Country: None (occurrence: None)
  Receive Date: 20050422
  Receipt Date: 20050411
  Transmission Date: 20051028
  Serious: Yes (Death)
  Sender: FDA-Public Use
  Company Number: US-JNJFOC-20050303920

PATIENT
  Sex: Female
  Weight: 43.95 kg

DRUGS (1)
  1. DURAGESIC-100 [Suspect]
     Route: 062
     Dates: end: 20040101

REACTIONS (2)
  - DEATH [None]
  - DECREASED APPETITE [None]
